FAERS Safety Report 19314665 (Version 1)
Quarter: 2021Q2

REPORT INFORMATION
  Report Type: Spontaneous
  Country: US (occurrence: US)
  Receive Date: 20210527
  Receipt Date: 20210527
  Transmission Date: 20210717
  Serious: No
  Sender: FDA-Public Use
  Company Number: US-SA-2021SA171184

PATIENT
  Age: 61 Year
  Sex: Male

DRUGS (14)
  1. MONTELUKAST [Concomitant]
     Active Substance: MONTELUKAST SODIUM
  2. BENZONATATE. [Concomitant]
     Active Substance: BENZONATATE
  3. FLUTICASONE. [Concomitant]
     Active Substance: FLUTICASONE
  4. DUTASTERIDE;TAMSULOSIN [Concomitant]
  5. OMEPRAZOLE. [Concomitant]
     Active Substance: OMEPRAZOLE
  6. OLMESARTAN MEDOXOMIL/AMLODIPINE [Concomitant]
  7. ZOLPIDEM [Concomitant]
     Active Substance: ZOLPIDEM TARTRATE
  8. AZELASTINE. [Concomitant]
     Active Substance: AZELASTINE HYDROCHLORIDE
  9. CEFDINIR. [Concomitant]
     Active Substance: CEFDINIR
  10. GEMFIBROZIL. [Concomitant]
     Active Substance: GEMFIBROZIL
  11. DUPIXENT [Suspect]
     Active Substance: DUPILUMAB
     Indication: ASTHMA
     Dosage: 150 MG/ML, QOW
     Route: 058
     Dates: start: 20200227
  12. VENTOLIN [Concomitant]
     Active Substance: ALBUTEROL SULFATE
  13. VITAMIN D [VITAMIN D NOS] [Concomitant]
     Active Substance: VITAMIN D NOS
  14. PREDNISONE. [Concomitant]
     Active Substance: PREDNISONE
     Indication: ASTHMA
     Dosage: UNK
     Dates: start: 202105

REACTIONS (2)
  - Drug ineffective [Unknown]
  - Impaired quality of life [Not Recovered/Not Resolved]
